FAERS Safety Report 5311387-X (Version None)
Quarter: 2007Q2

REPORT INFORMATION
  Report Type: 
  Country: None (occurrence: None)
  Receive Date: 20070430
  Receipt Date: 20070423
  Transmission Date: 20071010
  Serious: Yes (Hospitalization)
  Sender: FDA-Public Use
  Company Number: US-JNJFOC-20060901387

PATIENT
  Sex: Female
  Weight: 69.4 kg

DRUGS (2)
  1. ORTHO EVRA [Suspect]
     Indication: DYSMENORRHOEA
     Route: 062
  2. ORTHO EVRA [Suspect]
     Indication: MENORRHAGIA
     Route: 062

REACTIONS (1)
  - PULMONARY EMBOLISM [None]
